FAERS Safety Report 6093584-1 (Version None)
Quarter: 2009Q1

REPORT INFORMATION
  Report Type: 
  Country: None (occurrence: None)
  Receive Date: 20090226
  Receipt Date: 20090216
  Transmission Date: 20090719
  Serious: Yes (Hospitalization)
  Sender: FDA-Public Use
  Company Number: FR-PFIZER INC-2009173713

PATIENT

DRUGS (7)
  1. ATARAX [Suspect]
     Indication: ANXIETY
     Dosage: 12.5 MG, 2X/DAY
     Route: 048
     Dates: start: 20081201, end: 20090115
  2. STILNOX [Suspect]
     Indication: INSOMNIA
     Dosage: UNK DF, UNK
     Route: 048
     Dates: start: 20081201, end: 20090115
  3. CLOZAPINE [Suspect]
     Indication: ABNORMAL BEHAVIOUR
     Dosage: 50 MG, 3X/DAY
     Route: 048
     Dates: start: 20081128, end: 20090115
  4. CLOZAPINE [Suspect]
     Dosage: UNK
  5. LEXOMIL [Suspect]
     Indication: ANXIETY
     Dosage: UNK
     Route: 048
     Dates: start: 20060101, end: 20090115
  6. GLUCOVANCE [Concomitant]
     Indication: TYPE 2 DIABETES MELLITUS
     Dosage: 1 DF, 2X/DAY
     Route: 048
     Dates: start: 20060101, end: 20090115
  7. DEPAKOTE [Concomitant]
     Indication: PSYCHOTIC DISORDER
     Dosage: 250 MG, 3X/DAY
     Route: 048
     Dates: start: 20081201, end: 20090117

REACTIONS (5)
  - DRUG INTERACTION [None]
  - LUNG DISORDER [None]
  - OVERDOSE [None]
  - RESPIRATORY DEPRESSION [None]
  - SOMNOLENCE [None]
